FAERS Safety Report 6328608-7 (Version None)
Quarter: 2009Q3

REPORT INFORMATION
  Report Type: 
  Country: None (occurrence: None)
  Receive Date: 20090826
  Receipt Date: 20071018
  Transmission Date: 20100115
  Serious: Yes (Other)
  Sender: FDA-Public Use
  Company Number: US-ASTRAZENECA-2007UW19457

PATIENT
  Age: 14542 Day
  Sex: Female
  Weight: 68.5 kg

DRUGS (14)
  1. SEROQUEL [Suspect]
     Indication: SCHIZOPHRENIA
     Route: 048
     Dates: start: 20030114
  2. SEROQUEL [Suspect]
     Route: 048
     Dates: start: 20030823, end: 20041111
  3. REMERON [Concomitant]
     Route: 048
     Dates: start: 20030114
  4. TOPAMAX [Concomitant]
     Route: 048
     Dates: start: 20030114
  5. HYDROCODONE [Concomitant]
     Dosage: ONE TABLET AS REQUIRED
     Dates: start: 20040213
  6. ENALAPRIL MALEATE [Concomitant]
     Dates: start: 20060629
  7. ATENOLOL [Concomitant]
     Dates: start: 20050201
  8. PROCARDIA [Concomitant]
     Dosage: 60 MG - 90 MG
     Dates: start: 20050512
  9. CLONIDINE [Concomitant]
     Dates: start: 20040413
  10. GEODON [Concomitant]
     Dosage: 80 MG - 320 MG
     Dates: start: 20050512
  11. LANTUS [Concomitant]
     Dosage: 22 UNIT - 40 UNIT AS REQUIRED
     Dates: start: 20040413
  12. LITHIUM CARBONATE [Concomitant]
     Dates: start: 20030113
  13. ALTACE [Concomitant]
     Route: 048
     Dates: start: 20050512
  14. EFFEXOR [Concomitant]
     Dates: start: 20040120

REACTIONS (6)
  - DIABETES MELLITUS [None]
  - DIABETIC COMPLICATION [None]
  - DIABETIC GASTROPARESIS [None]
  - DIABETIC NEPHROPATHY [None]
  - HYPERGLYCAEMIA [None]
  - NEUROPATHY PERIPHERAL [None]
